FAERS Safety Report 4531676-6 (Version None)
Quarter: 2004Q4

REPORT INFORMATION
  Report Type: 
  Country: None (occurrence: None)
  Receive Date: 20041216
  Receipt Date: 20041216
  Transmission Date: 20050328
  Serious: Yes (Hospitalization)
  Sender: FDA-Public Use
  Company Number: None

PATIENT
  Age: 40 Year
  Sex: Male
  Weight: 81.3753 kg

DRUGS (3)
  1. DILANTIN [Suspect]
     Indication: CONVULSION PROPHYLAXIS
     Dosage: 400 MG PO QD
     Route: 048
     Dates: start: 19990101
  2. ASPIRIN [Concomitant]
  3. ACETAMINOPHEN [Concomitant]

REACTIONS (1)
  - ANTICONVULSANT TOXICITY [None]
